FAERS Safety Report 10261902 (Version 1)
Quarter: 2014Q2

REPORT INFORMATION
  Report Type: Spontaneous
  Country: MX (occurrence: MX)
  Receive Date: 20140626
  Receipt Date: 20140626
  Transmission Date: 20141212
  Serious: Yes (Other)
  Sender: FDA-Public Use
  Company Number: MX-ROXANE LABORATORIES, INC.-2014-RO-00969RO

PATIENT
  Age: 17 Year
  Sex: Male
  Weight: 80 kg

DRUGS (2)
  1. PREDNISONE [Suspect]
     Indication: RASH PUSTULAR
     Dosage: 50 MG
     Route: 048
  2. DEXAMETHASONE [Suspect]
     Indication: RASH PUSTULAR
     Route: 030

REACTIONS (2)
  - Acne fulminans [Recovered/Resolved]
  - Cushing^s syndrome [Recovered/Resolved]
